FAERS Safety Report 8144827-1 (Version None)
Quarter: 2012Q1

REPORT INFORMATION
  Report Type: 
  Country: None (occurrence: None)
  Receive Date: 20120217
  Receipt Date: 20120209
  Transmission Date: 20120608
  Serious: Yes (Death)
  Sender: FDA-Public Use
  Company Number: NL-GENZYME-POMP-1001236

PATIENT
  Sex: Female
  Weight: 56 kg

DRUGS (6)
  1. OSTAC [Concomitant]
     Indication: HYPERCALCAEMIA
     Dosage: 520 MG, BID
     Dates: start: 20080101
  2. MIRTAZAPINE [Concomitant]
     Indication: DEPRESSION
     Dosage: 15 MG, QD
     Dates: start: 20080101
  3. ALPRAZOLAM [Concomitant]
     Indication: ANXIETY
     Dosage: 0.25 MG, QD
  4. SYMBICORT [Concomitant]
     Indication: CHRONIC OBSTRUCTIVE PULMONARY DISEASE
     Dosage: BID-TID
     Dates: start: 20100527
  5. FULVESTRANT [Concomitant]
     Indication: BREAST CANCER
     Dosage: 250 MG, Q4W
     Route: 030
     Dates: start: 20090119
  6. MYOZYME [Suspect]
     Indication: GLYCOGEN STORAGE DISEASE TYPE II
     Dosage: 20 MG/KG, Q2W
     Route: 042
     Dates: start: 20080530

REACTIONS (1)
  - BREAST CANCER METASTATIC [None]
